FAERS Safety Report 11167192 (Version 2)
Quarter: 2016Q1

REPORT INFORMATION
  Report Type: Report from Study
  Country: BR (occurrence: BR)
  Receive Date: 20150605
  Receipt Date: 20160223
  Transmission Date: 20160525
  Serious: Yes (Other)
  Sender: FDA-Public Use
  Company Number: BR-ROCHE-1589301

PATIENT
  Age: 12 Year
  Sex: Female
  Weight: 43 kg

DRUGS (9)
  1. XOLAIR [Suspect]
     Active Substance: OMALIZUMAB
     Route: 058
  2. XOLAIR [Suspect]
     Active Substance: OMALIZUMAB
     Route: 058
     Dates: start: 20131119
  3. SERETIDE [Concomitant]
     Active Substance: FLUTICASONE FUROATE\SALMETEROL XINAFOATE
     Route: 065
     Dates: end: 201411
  4. XOLAIR [Suspect]
     Active Substance: OMALIZUMAB
     Indication: ASTHMA
     Route: 058
     Dates: start: 20130525
  5. AEROLIN [Concomitant]
     Active Substance: ALBUTEROL
     Dosage: 4 PUFFS, 2 SEQUENCES WITH A PERIOD OF TIME
     Route: 065
     Dates: start: 2009
  6. XOLAIR [Suspect]
     Active Substance: OMALIZUMAB
     Route: 058
  7. SINGULAIR [Concomitant]
     Active Substance: MONTELUKAST SODIUM
  8. AVAMYS [Concomitant]
     Active Substance: FLUTICASONE FUROATE
  9. ATROVENT [Concomitant]
     Active Substance: IPRATROPIUM BROMIDE
     Route: 065
     Dates: start: 2009

REACTIONS (3)
  - Asthmatic crisis [Recovered/Resolved]
  - Asthma [Recovering/Resolving]
  - Fatigue [Recovered/Resolved]

NARRATIVE: CASE EVENT DATE: 20131121
